FAERS Safety Report 17826217 (Version 1)
Quarter: 2020Q2

REPORT INFORMATION
  Report Type: Report from Study
  Country: None (occurrence: US)
  Receive Date: 20200527
  Receipt Date: 20200527
  Transmission Date: 20200714
  Serious: Yes (Other)
  Sender: FDA-Public Use
  Company Number: US-ABBVIE-20K-163-3280925-00

PATIENT
  Sex: Male

DRUGS (2)
  1. VENCLEXTA [Suspect]
     Active Substance: VENETOCLAX
     Indication: CHRONIC LYMPHOCYTIC LEUKAEMIA
     Route: 048
     Dates: start: 20191010
  2. VENCLEXTA [Suspect]
     Active Substance: VENETOCLAX
     Route: 048

REACTIONS (8)
  - Skin odour abnormal [Unknown]
  - Skin ulcer [Unknown]
  - Emotional disorder [Unknown]
  - Abnormal faeces [Unknown]
  - Feeling abnormal [Unknown]
  - Skin cancer [Unknown]
  - Urine odour abnormal [Unknown]
  - Decreased appetite [Unknown]
